FAERS Safety Report 7915826-7 (Version None)
Quarter: 2011Q4

REPORT INFORMATION
  Report Type: 
  Country: None (occurrence: None)
  Receive Date: 20111115
  Receipt Date: 20111111
  Transmission Date: 20120403
  Serious: Yes (Other)
  Sender: FDA-Public Use
  Company Number: CHPA2011NO015953

PATIENT
  Age: 50 Year
  Sex: Female

DRUGS (3)
  1. ANTIHYPERTENSIVES [Concomitant]
     Indication: HYPERTENSION
     Dosage: UNK, UNK
     Route: 065
  2. NICOTINE [Suspect]
     Dosage: 40-50 2MG GUM, PER DAY
  3. DRUG THERAPY NOS [Concomitant]
     Indication: CARDIAC DISORDER
     Dosage: UNK, UNK
     Route: 065

REACTIONS (9)
  - ANGINA PECTORIS [None]
  - INCORRECT DRUG ADMINISTRATION DURATION [None]
  - OVERDOSE [None]
  - TOBACCO POISONING [None]
  - RASH MACULAR [None]
  - TREATMENT NONCOMPLIANCE [None]
  - RENAL DISORDER [None]
  - NICOTINE DEPENDENCE [None]
  - PALPITATIONS [None]
